FAERS Safety Report 12092734 (Version 1)
Quarter: 2016Q1

REPORT INFORMATION
  Report Type: Spontaneous
  Country: US (occurrence: US)
  Receive Date: 20160219
  Receipt Date: 20160219
  Transmission Date: 20160526
  Serious: No
  Sender: FDA-Public Use
  Company Number: US-009507513-1602USA008999

PATIENT
  Age: 19 Year
  Sex: Female
  Weight: 74.83 kg

DRUGS (2)
  1. NEXPLANON [Suspect]
     Active Substance: ETONOGESTREL
     Indication: CONTRACEPTION
     Dosage: FREQUENCY : EVERY 3 YEARS, IMPLANT INSERTED IN THE LEFT ARM
     Route: 059
     Dates: start: 20160125
  2. ANTIMICROBIAL (UNSPECIFIED) [Concomitant]
     Active Substance: UNSPECIFIED INGREDIENT

REACTIONS (1)
  - Purulent discharge [Unknown]

NARRATIVE: CASE EVENT DATE: 20160125
